FAERS Safety Report 8636991 (Version 7)
Quarter: 2014Q1

REPORT INFORMATION
  Report Type: Spontaneous
  Country: CA (occurrence: CA)
  Receive Date: 20120626
  Receipt Date: 20140102
  Transmission Date: 20141002
  Serious: Yes (Other)
  Sender: FDA-Public Use
  Company Number: CA-ROCHE-1081214

PATIENT
  Age: 55 Year
  Sex: Female

DRUGS (9)
  1. XOLAIR [Suspect]
     Indication: ASTHMA
     Route: 058
     Dates: start: 20110708
  2. XOLAIR [Suspect]
     Route: 058
     Dates: start: 20120619
  3. XOLAIR [Suspect]
     Route: 065
     Dates: start: 20131230
  4. ADVAIR [Concomitant]
  5. VENTOLIN [Concomitant]
     Route: 065
  6. SINGULAIR [Concomitant]
  7. PREDNISONE [Concomitant]
     Route: 065
  8. PREDNISONE [Concomitant]
     Route: 065
  9. CIPROFLOXACIN [Concomitant]
     Route: 065

REACTIONS (16)
  - Aphonia [Unknown]
  - Dysphonia [Unknown]
  - Nasal congestion [Unknown]
  - Productive cough [Unknown]
  - Dyspnoea [Unknown]
  - Hot flush [Recovered/Resolved]
  - Nausea [Recovered/Resolved]
  - Pruritus [Recovered/Resolved]
  - Rash [Recovered/Resolved]
  - Injection site pain [Unknown]
  - Fatigue [Unknown]
  - Cough [Not Recovered/Not Resolved]
  - Pyrexia [Recovered/Resolved]
  - Abdominal pain [Unknown]
  - Rhinorrhoea [Unknown]
  - Oropharyngeal pain [Unknown]
